FAERS Safety Report 7527602-8 (Version None)
Quarter: 2011Q2

REPORT INFORMATION
  Report Type: 
  Country: None (occurrence: None)
  Receive Date: 20110607
  Receipt Date: 20110602
  Transmission Date: 20111010
  Serious: No
  Sender: FDA-Public Use
  Company Number: US-PFIZER INC-2011120169

PATIENT
  Sex: Female
  Weight: 73.5 kg

DRUGS (4)
  1. POTASSIUM [Concomitant]
     Dosage: 10 MG, UNK
  2. TENORETIC [Concomitant]
     Dosage: UNK
  3. ZANTAC [Concomitant]
     Dosage: UNK
  4. LIPITOR [Suspect]
     Indication: BLOOD CHOLESTEROL INCREASED
     Dosage: 10 MG, DAILY
     Route: 048
     Dates: start: 20110518

REACTIONS (1)
  - FAECES DISCOLOURED [None]
